FAERS Safety Report 20967917 (Version 1)
Quarter: 2022Q2

REPORT INFORMATION
  Report Type: Spontaneous
  Country: CN (occurrence: CN)
  Receive Date: 20220616
  Receipt Date: 20220616
  Transmission Date: 20220721
  Serious: Yes (Hospitalization, Other)
  Sender: FDA-Public Use
  Company Number: CN-ELI_LILLY_AND_COMPANY-CN202206006274

PATIENT
  Age: 75 Year
  Sex: Male

DRUGS (3)
  1. PEMETREXED [Suspect]
     Active Substance: PEMETREXED
     Indication: Lung neoplasm malignant
     Dosage: 800 MG, CYCLICAL (EVERY 21 DAYS)
     Route: 042
     Dates: start: 20220511, end: 20220511
  2. PEMETREXED [Suspect]
     Active Substance: PEMETREXED
     Dosage: 800 MG, CYCLICAL (EVERY 21 DAYS)
     Route: 042
     Dates: start: 20220602, end: 20220602
  3. SODIUM CHLORIDE [Concomitant]
     Active Substance: SODIUM CHLORIDE
     Indication: Medication dilution
     Dosage: 100 ML, SINGLE
     Route: 042
     Dates: start: 20220511, end: 20220511

REACTIONS (2)
  - Phlebitis [Not Recovered/Not Resolved]
  - Peripheral venous disease [Not Recovered/Not Resolved]

NARRATIVE: CASE EVENT DATE: 20220530
